FAERS Safety Report 7233319-X (Version None)
Quarter: 2011Q1

REPORT INFORMATION
  Report Type: 
  Country: None (occurrence: None)
  Receive Date: 20110119
  Receipt Date: 20110112
  Transmission Date: 20110831
  Serious: Yes (Death, Hospitalization, Other)
  Sender: FDA-Public Use
  Company Number: US-ELI_LILLY_AND_COMPANY-US201101002861

PATIENT
  Age: 63 Year
  Sex: Female

DRUGS (7)
  1. BEVACIZUMAB [Suspect]
     Indication: OVARIAN CANCER
     Dosage: 15 MG, UNKNOWN
     Route: 048
     Dates: start: 20100403, end: 20100907
  2. NEXIUM [Concomitant]
  3. PEMETREXED [Suspect]
     Indication: OVARIAN CANCER
     Dosage: 500 MG/M2, UNKNOWN
     Route: 048
     Dates: start: 20100403, end: 20100907
  4. LOVENOX [Concomitant]
     Dosage: 100 MG, DAILY (1/D)
  5. LOVENOX [Concomitant]
     Dosage: 60 MG, 2/D
  6. OXYCODONE [Concomitant]
  7. LOVENOX [Concomitant]
     Dosage: 30 MG, 2/D

REACTIONS (3)
  - MENTAL STATUS CHANGES [None]
  - DEATH [None]
  - DEEP VEIN THROMBOSIS [None]
